FAERS Safety Report 11728974 (Version 3)
Quarter: 2016Q1

REPORT INFORMATION
  Report Type: Spontaneous
  Country: DE (occurrence: DE)
  Receive Date: 20151112
  Receipt Date: 20160226
  Transmission Date: 20160525
  Serious: Yes (Life-Threatening)
  Sender: FDA-Public Use
  Company Number: DE-SA-2015SA179731

PATIENT

DRUGS (2)
  1. CERDELGA [Suspect]
     Active Substance: ELIGLUSTAT
     Indication: GAUCHER^S DISEASE TYPE III
     Route: 048
  2. CEREZYME [Suspect]
     Active Substance: IMIGLUCERASE
     Indication: GAUCHER^S DISEASE TYPE III
     Route: 042

REACTIONS (3)
  - Lymphadenopathy [Recovering/Resolving]
  - Off label use [Unknown]
  - Disease progression [Recovering/Resolving]
